FAERS Safety Report 6321471-X (Version None)
Quarter: 2009Q3

REPORT INFORMATION
  Report Type: 
  Country: None (occurrence: None)
  Receive Date: 20090824
  Receipt Date: 20070319
  Transmission Date: 20100115
  Serious: Yes (Other)
  Sender: FDA-Public Use
  Company Number: US-ASTRAZENECA-2006UW07037

PATIENT
  Age: 17932 Day
  Sex: Male
  Weight: 101.2 kg

DRUGS (9)
  1. SEROQUEL [Suspect]
     Indication: DEPRESSION
     Dosage: 300MG, 400MG
     Route: 048
     Dates: start: 20010604, end: 20060922
  2. SEROQUEL [Suspect]
     Indication: ANXIETY
     Dosage: 300MG, 400MG
     Route: 048
     Dates: start: 20010604, end: 20060922
  3. SEROQUEL [Suspect]
     Dosage: 100 MG TO 400 MG
     Route: 048
     Dates: start: 20010703
  4. SEROQUEL [Suspect]
     Dosage: 100 MG TO 400 MG
     Route: 048
     Dates: start: 20010703
  5. ZYPREXA [Suspect]
     Dates: start: 20000807, end: 20001107
  6. PAXIL [Concomitant]
     Route: 048
     Dates: start: 19970728
  7. PAXIL [Concomitant]
     Dosage: 20 MG, 40 MG ONE AND HALF TABLET
     Route: 048
     Dates: start: 20010703
  8. ZOCOR [Concomitant]
     Route: 048
     Dates: start: 20020409
  9. WELLBUTRIN [Concomitant]
     Route: 048
     Dates: start: 20040128

REACTIONS (7)
  - CATARACT [None]
  - DIABETES MELLITUS [None]
  - DIABETIC RETINOPATHY [None]
  - DYSLIPIDAEMIA [None]
  - ORGANIC ERECTILE DYSFUNCTION [None]
  - TYPE 2 DIABETES MELLITUS [None]
  - WEIGHT INCREASED [None]
